FAERS Safety Report 9748778 (Version 1)
Quarter: 2013Q4

REPORT INFORMATION
  Report Type: Spontaneous
  Country: US (occurrence: None)
  Receive Date: 20131211
  Receipt Date: 20131211
  Transmission Date: 20140711
  Serious: Yes (Hospitalization)
  Sender: FDA-Public Use
  Company Number: None

PATIENT
  Age: 17 Month
  Sex: Male
  Weight: 10.5 kg

DRUGS (1)
  1. EXJADE [Suspect]
     Route: 048
     Dates: start: 20130819

REACTIONS (1)
  - Investigation [None]
